FAERS Safety Report 23565173 (Version 1)
Quarter: 2024Q1

REPORT INFORMATION
  Report Type: Spontaneous
  Country: US (occurrence: US)
  Receive Date: 20240226
  Receipt Date: 20240226
  Transmission Date: 20240410
  Serious: Yes (Other)
  Sender: FDA-Public Use
  Company Number: US-PFIZER INC-PV202400004770

PATIENT
  Age: 53 Year
  Sex: Female

DRUGS (1)
  1. IBRANCE [Suspect]
     Active Substance: PALBOCICLIB
     Dosage: TAKE ONE TAB FOR 21 CONSECUTIVE DAYS THEN STOP FOR 7 CONSECUTIVE DAYS. AVOID GRAPEFRUIT PRODUCTS. SW
     Route: 048

REACTIONS (1)
  - Neutropenia [Unknown]
